FAERS Safety Report 13381435 (Version 1)
Quarter: 2017Q1

REPORT INFORMATION
  Report Type: Spontaneous
  Country: BR (occurrence: BR)
  Receive Date: 20170329
  Receipt Date: 20170329
  Transmission Date: 20170429
  Serious: Yes (Hospitalization, Other)
  Sender: FDA-Public Use
  Company Number: BR-009507513-1703BRA011914

PATIENT
  Sex: Male
  Weight: 76 kg

DRUGS (2)
  1. TRUSOPT [Suspect]
     Active Substance: DORZOLAMIDE HYDROCHLORIDE
     Indication: GLAUCOMA
     Dosage: 1 DROP IN EACH EYE, THREE TIMES DAILY
     Route: 047
  2. LACRIMA PLUS [Concomitant]
     Active Substance: DEXTRAN 70\HYPROMELLOSES
     Indication: DRY EYE

REACTIONS (4)
  - Cataract [Recovered/Resolved]
  - Coronary vein stenosis [Recovered/Resolved]
  - Coronary arterial stent insertion [Unknown]
  - Optic atrophy [Unknown]

NARRATIVE: CASE EVENT DATE: 2002
